FAERS Safety Report 5165357-5 (Version None)
Quarter: 2006Q4

REPORT INFORMATION
  Report Type: 
  Country: None (occurrence: None)
  Receive Date: 20061206
  Receipt Date: 20061124
  Transmission Date: 20070319
  Serious: Yes (Hospitalization)
  Sender: FDA-Public Use
  Company Number: PHRM2006FR03153

PATIENT
  Age: 17 Year
  Sex: Female

DRUGS (8)
  1. RODOGYL [Suspect]
     Dosage: UNK, ONCE/SINGLE
     Route: 048
     Dates: start: 20061015, end: 20061015
  2. SUDAFED 12 HOUR [Suspect]
     Dosage: 900 MG, ONCE/SINGLE
     Route: 048
     Dates: start: 20061015, end: 20061015
  3. IBUPROFEN [Suspect]
     Dosage: 4 G, ONCE/SINGLE
     Route: 048
     Dates: start: 20061015, end: 20061015
  4. ACETAMINOPHEN [Suspect]
     Dosage: 2.5 G, ONCE/SINGLE
     Dates: start: 20061015, end: 20061015
  5. ACECLOFENAC [Suspect]
     Dosage: 1.4 G, ONCE/SINGLE
     Route: 048
     Dates: start: 20061015, end: 20061015
  6. VOLTAREN [Suspect]
     Dosage: 250 MG, ONCE/SINGLE
     Route: 048
     Dates: start: 20061015, end: 20061015
  7. SAVARINE [Suspect]
     Dosage: 4 G, ONCE/SINGLE
     Route: 048
     Dates: start: 20061015, end: 20061015
  8. XANAX [Suspect]
     Dosage: 2.5 G, ONCE/SINGLE
     Route: 048
     Dates: start: 20061015, end: 20061015

REACTIONS (5)
  - DIARRHOEA [None]
  - GASTRIC LAVAGE [None]
  - INTENTIONAL OVERDOSE [None]
  - SUICIDE ATTEMPT [None]
  - VOMITING [None]
